FAERS Safety Report 7896085-0 (Version None)
Quarter: 2011Q4

REPORT INFORMATION
  Report Type: 
  Country: None (occurrence: None)
  Receive Date: 20111106
  Receipt Date: 20110906
  Transmission Date: 20120403
  Serious: No
  Sender: FDA-Public Use
  Company Number: US-AMGEN-USASP2011045575

PATIENT
  Sex: Female

DRUGS (1)
  1. ENBREL [Suspect]
     Indication: PSORIATIC ARTHROPATHY
     Dosage: 50 MG, QWK
     Dates: start: 20110706

REACTIONS (6)
  - MOTOR DYSFUNCTION [None]
  - HEADACHE [None]
  - PSORIASIS [None]
  - GAIT DISTURBANCE [None]
  - PAIN [None]
  - THERAPEUTIC RESPONSE DECREASED [None]
